FAERS Safety Report 4698429-X (Version None)
Quarter: 2005Q2

REPORT INFORMATION
  Report Type: 
  Country: None (occurrence: None)
  Receive Date: 20050621
  Receipt Date: 20050608
  Transmission Date: 20051028
  Serious: Yes (Hospitalization)
  Sender: FDA-Public Use
  Company Number: EWC050343111

PATIENT
  Age: 71 Year
  Sex: Male

DRUGS (3)
  1. GEMCITABINE HYDROCHLORIDE-IV (GEMCITABINE) [Suspect]
     Indication: BLADDER NEOPLASM
     Dosage: 1000 MG/M2/3 OTHER
     Route: 050
     Dates: start: 20050207, end: 20050221
  2. CISPLATIN [Suspect]
     Indication: BLADDER NEOPLASM
     Dosage: 70 MG/M2/1 OTHER
     Route: 050
     Dates: start: 20050208, end: 20050208
  3. RABEPRAZOLE SODIUM [Concomitant]

REACTIONS (3)
  - ANAEMIA [None]
  - ANGINA PECTORIS [None]
  - ELECTROCARDIOGRAM ST SEGMENT ABNORMAL [None]
